FAERS Safety Report 9706570 (Version 1)
Quarter: 2013Q4

REPORT INFORMATION
  Report Type: Spontaneous
  Country: US (occurrence: US)
  Receive Date: 20131125
  Receipt Date: 20131125
  Transmission Date: 20140711
  Serious: Yes (Life-Threatening, Hospitalization, Other)
  Sender: FDA-Public Use
  Company Number: US-TEVA-446650USA

PATIENT
  Age: 24 Year
  Sex: Female
  Weight: 72.64 kg

DRUGS (2)
  1. PARAGARD 380A [Suspect]
     Indication: CONTRACEPTION
     Route: 015
     Dates: start: 20130523, end: 20130806
  2. MICRONOR [Concomitant]
     Indication: CONTRACEPTION
     Dates: start: 20130506

REACTIONS (2)
  - Intestinal perforation [Recovered/Resolved]
  - Device dislocation [Recovered/Resolved]
